FAERS Safety Report 4521848-9 (Version None)
Quarter: 2004Q4

REPORT INFORMATION
  Report Type: 
  Country: None (occurrence: None)
  Receive Date: 20041209
  Receipt Date: 20041206
  Transmission Date: 20050328
  Serious: Yes (Death, Hospitalization)
  Sender: FDA-Public Use
  Company Number: US-JNJFOC-20041201605

PATIENT
  Age: 83 Year
  Sex: Female

DRUGS (1)
  1. DURAGESIC [Suspect]
     Indication: DRUG USE FOR UNKNOWN INDICATION
     Route: 062

REACTIONS (5)
  - DEATH [None]
  - DRUG TOXICITY [None]
  - FALL [None]
  - HEAD INJURY [None]
  - OVERDOSE [None]
